FAERS Safety Report 19797389 (Version 1)
Quarter: 2021Q3

REPORT INFORMATION
  Report Type: Report from Study
  Country: BE (occurrence: BE)
  Receive Date: 20210907
  Receipt Date: 20210907
  Transmission Date: 20211014
  Serious: Yes (Death, Hospitalization, Other)
  Sender: FDA-Public Use
  Company Number: BE-GLAXOSMITHKLINE-BE2021EME164598

PATIENT
  Age: 34 Year
  Sex: Female

DRUGS (2)
  1. EPOPROSTENOL SODIUM. [Suspect]
     Active Substance: EPOPROSTENOL SODIUM
     Indication: PULMONARY ARTERIAL HYPERTENSION
     Dosage: UNK, 20 MG
     Route: 042
     Dates: start: 20210722
  2. EPOPROSTENOL SODIUM. [Suspect]
     Active Substance: EPOPROSTENOL SODIUM
     Dosage: 22 DF NG/KG/MIN
     Route: 042
     Dates: start: 20210726, end: 20210818

REACTIONS (6)
  - Hospitalisation [Unknown]
  - Epilepsy [Unknown]
  - Exposure during pregnancy [Unknown]
  - Death [Fatal]
  - Cardiac arrest [Unknown]
  - Abortion induced [Unknown]

NARRATIVE: CASE EVENT DATE: 202108
